FAERS Safety Report 14331890 (Version 1)
Quarter: 2017Q4

REPORT INFORMATION
  Report Type: Spontaneous
  Country: ES (occurrence: ES)
  Receive Date: 20171228
  Receipt Date: 20171228
  Transmission Date: 20180321
  Serious: Yes (Congenital Anomaly)
  Sender: FDA-Public Use
  Company Number: ES-JNJFOC-20171222963

PATIENT
  Age: 2 Day
  Sex: Male
  Weight: 2 kg

DRUGS (9)
  1. CYCLOPHOSPHAMIDE. [Suspect]
     Active Substance: CYCLOPHOSPHAMIDE
     Indication: BURKITT^S LYMPHOMA
     Dosage: MOTHER^S DOSE
     Route: 064
     Dates: start: 20170814, end: 20170926
  2. VINCRISTINE SULFATE. [Suspect]
     Active Substance: VINCRISTINE SULFATE
     Indication: BURKITT^S LYMPHOMA
     Dosage: MOTHER^S DOSE
     Route: 064
     Dates: start: 20170814, end: 20170926
  3. PREDNISONE. [Suspect]
     Active Substance: PREDNISONE
     Indication: BURKITT^S LYMPHOMA
     Dosage: MOTHER^S DOSE
     Route: 064
     Dates: start: 20170814, end: 20170926
  4. METHYLPREDNISOLONE. [Suspect]
     Active Substance: METHYLPREDNISOLONE
     Indication: BURKITT^S LYMPHOMA
     Dosage: MOTHER^S DOSE
     Route: 064
     Dates: start: 20170814, end: 20170926
  5. HYDROCORTISONE. [Suspect]
     Active Substance: HYDROCORTISONE
     Indication: BURKITT^S LYMPHOMA
     Dosage: MOTHER^S DOSE
     Route: 064
     Dates: start: 20170814, end: 20170926
  6. CYTARABINE. [Suspect]
     Active Substance: CYTARABINE
     Indication: BURKITT^S LYMPHOMA
     Dosage: MOTHER^S DOSE
     Route: 064
     Dates: start: 20170814, end: 20170926
  7. DOXORUBICIN HYDROCHLORIDE. [Suspect]
     Active Substance: DOXORUBICIN HYDROCHLORIDE
     Indication: BURKITT^S LYMPHOMA
     Dosage: MOTHER^S DOSE
     Route: 064
     Dates: start: 20170814, end: 20170926
  8. RITUXIMAB. [Suspect]
     Active Substance: RITUXIMAB
     Indication: BURKITT^S LYMPHOMA
     Dosage: MOTHER^S DOSE
     Route: 064
     Dates: start: 20170814, end: 20170926
  9. METHOTREXATE. [Suspect]
     Active Substance: METHOTREXATE
     Indication: BURKITT^S LYMPHOMA
     Dosage: MOTHER^S DOSE
     Route: 064
     Dates: start: 20170814, end: 20170926

REACTIONS (2)
  - Congenital cardiovascular anomaly [Recovering/Resolving]
  - Foetal exposure during pregnancy [Recovering/Resolving]

NARRATIVE: CASE EVENT DATE: 20170814
